FAERS Safety Report 8607546-0 (Version None)
Quarter: 2012Q3

REPORT INFORMATION
  Report Type: 
  Country: None (occurrence: None)
  Receive Date: 20120821
  Receipt Date: 20120809
  Transmission Date: 20120928
  Serious: Yes (Hospitalization, Other)
  Sender: FDA-Public Use
  Company Number: US-BAYER-2010-001668

PATIENT
  Age: 34 Year
  Sex: Female
  Weight: 68 kg

DRUGS (12)
  1. YASMIN [Suspect]
     Indication: PREMENSTRUAL SYNDROME
     Dosage: UNK
     Route: 048
     Dates: start: 20050101
  2. DROSPIRENONE AND ETHINYL ESTRADIOL [Suspect]
     Indication: PREMENSTRUAL SYNDROME
     Dosage: UNK
     Route: 048
     Dates: start: 20050101
  3. EFFEXOR [Concomitant]
     Dosage: 75 MG, UNK
     Route: 048
     Dates: start: 20070717
  4. METRONIDAZOLE [Concomitant]
     Dosage: 250 MG, UNK
     Route: 048
     Dates: start: 20070813
  5. ROBINUL [Concomitant]
     Dosage: 1 MG, UNK
     Route: 048
     Dates: start: 20070717
  6. MIDAZOLAM [Concomitant]
     Dosage: 2 MG, UNK
     Route: 042
     Dates: start: 20070723
  7. YAZ [Suspect]
     Indication: PREMENSTRUAL SYNDROME
     Dosage: UNK
     Route: 048
     Dates: start: 20050101
  8. LUNESTA [Concomitant]
     Dosage: UNK
     Route: 048
     Dates: start: 20070614
  9. FENTANYL CITRATE [Concomitant]
     Dosage: 100 ?G, UNK
     Route: 042
     Dates: start: 20070723
  10. GOLYTELY [Concomitant]
     Dosage: 4 L, UNK
     Route: 048
     Dates: start: 20070717
  11. TETRACYCLINE [Concomitant]
     Dosage: 500 MG, UNK
     Route: 048
     Dates: start: 20070813
  12. PROPOFOL [Concomitant]
     Dosage: UNK
     Route: 042
     Dates: start: 20070723

REACTIONS (5)
  - DEEP VEIN THROMBOSIS [None]
  - INJURY [None]
  - PULMONARY EMBOLISM [None]
  - THROMBOSIS [None]
  - PAIN [None]
